FAERS Safety Report 22647976 (Version 5)
Quarter: 2023Q4

REPORT INFORMATION
  Report Type: Report from Study
  Country: US (occurrence: US)
  Receive Date: 20230628
  Receipt Date: 20231102
  Transmission Date: 20240110
  Serious: No
  Sender: FDA-Public Use
  Company Number: US-002147023-NVSC2023US146977

PATIENT
  Sex: Female

DRUGS (2)
  1. VALSARTAN [Suspect]
     Active Substance: VALSARTAN
     Indication: Product used for unknown indication
     Dosage: UNK
     Route: 065
  2. ENTRESTO [Suspect]
     Active Substance: SACUBITRIL\VALSARTAN
     Indication: Product used for unknown indication
     Dosage: 24 MG, BID (24/26MG 1 BID)
     Route: 065

REACTIONS (13)
  - Gastric infection [Unknown]
  - Strabismus [Unknown]
  - Memory impairment [Unknown]
  - Balance disorder [Unknown]
  - Seasonal allergy [Unknown]
  - Rhinorrhoea [Unknown]
  - Throat clearing [Unknown]
  - Dyspnoea [Unknown]
  - Fall [Unknown]
  - Asthenia [Unknown]
  - Fatigue [Unknown]
  - Cough [Unknown]
  - Contraindicated product administered [Unknown]
